FAERS Safety Report 4883994-X (Version None)
Quarter: 2006Q1

REPORT INFORMATION
  Report Type: 
  Country: None (occurrence: None)
  Receive Date: 20060106
  Receipt Date: 20051229
  Transmission Date: 20060701
  Serious: No
  Sender: FDA-Public Use
  Company Number: CART-10009

PATIENT
  Age: 35 Year
  Sex: Male
  Weight: 136.0791 kg

DRUGS (2)
  1. CARTICEL [Suspect]
     Indication: BONE DISORDER
     Dosage: 1 NA ONCE IS
     Route: 011
     Dates: start: 20010212, end: 20010212
  2. ADVIL [Concomitant]

REACTIONS (7)
  - CHONDROMALACIA [None]
  - GRAFT COMPLICATION [None]
  - JOINT ADHESION [None]
  - JOINT SWELLING [None]
  - MENISCUS LESION [None]
  - PAIN [None]
  - SCAR [None]
